FAERS Safety Report 4935172-3 (Version None)
Quarter: 2006Q1

REPORT INFORMATION
  Report Type: 
  Country: None (occurrence: None)
  Receive Date: 20060303
  Receipt Date: 20060303
  Transmission Date: 20060701
  Serious: Yes (Life-Threatening)
  Sender: FDA-Public Use
  Company Number: None

PATIENT
  Sex: Male
  Weight: 45.3597 kg

DRUGS (7)
  1. DOCETAXEL [Suspect]
     Indication: LUNG NEOPLASM MALIGNANT
     Dosage: 30 MG   Q WEEKLY  IV
     Route: 042
     Dates: start: 20060228, end: 20060228
  2. KCL (UNIT DOSE) [Concomitant]
  3. FOLIC ACID [Concomitant]
  4. PREVACID [Concomitant]
  5. HYDROCODONE [Concomitant]
  6. M.V.I. [Concomitant]
  7. COMBIVENT [Concomitant]

REACTIONS (9)
  - CHEST DISCOMFORT [None]
  - CYANOSIS [None]
  - FLUSHING [None]
  - HYPOTENSION [None]
  - HYPOXIA [None]
  - INFUSION RELATED REACTION [None]
  - INFUSION SITE ERYTHEMA [None]
  - INFUSION SITE INFLAMMATION [None]
  - OXYGEN SATURATION DECREASED [None]
